FAERS Safety Report 11777959 (Version 1)
Quarter: 2015Q4

REPORT INFORMATION
  Report Type: Spontaneous
  Country: US (occurrence: US)
  Receive Date: 20151125
  Receipt Date: 20151125
  Transmission Date: 20160304
  Serious: Yes (Hospitalization)
  Sender: FDA-Public Use
  Company Number: US-PFIZER INC-2015396289

PATIENT
  Age: 57 Year
  Sex: Male
  Weight: 158.76 kg

DRUGS (5)
  1. LYRICA [Suspect]
     Active Substance: PREGABALIN
     Indication: ARTHRITIS
     Dosage: 100 MG, 3X/DAY
     Route: 048
  2. DETROL ER [Concomitant]
     Indication: BLADDER SPASM
     Dosage: UNK, 2X/DAY (DOSE UNKNOWN)
     Route: 048
  3. ULTRAM [Concomitant]
     Active Substance: TRAMADOL HYDROCHLORIDE
     Indication: PAIN
     Dosage: 50 MG, 2X/DAY
     Route: 048
  4. CELEBREX [Concomitant]
     Active Substance: CELECOXIB
     Indication: ARTHRITIS
     Dosage: 200 MG, 2X/DAY
     Route: 048
  5. BENICAR [Concomitant]
     Active Substance: OLMESARTAN MEDOXOMIL
     Indication: HYPERTENSION
     Dosage: ([OLMESARTAN, 40MG]/[HYDROCHLOROTHIAZIDE,12.5MG]), 1X/DAY
     Route: 048

REACTIONS (11)
  - Product use issue [Unknown]
  - Somnolence [Unknown]
  - Delusion [Recovered/Resolved]
  - Amnesia [Recovered/Resolved]
  - Pre-existing condition improved [Unknown]
  - Loss of consciousness [Unknown]
  - Therapeutic response unexpected [Unknown]
  - Atrial fibrillation [Not Recovered/Not Resolved]
  - Respiratory disorder [Recovering/Resolving]
  - Respiratory arrest [Recovered/Resolved]
  - Productive cough [Unknown]

NARRATIVE: CASE EVENT DATE: 20150815
